FAERS Safety Report 10056114 (Version 1)
Quarter: 2014Q2

REPORT INFORMATION
  Report Type: Spontaneous
  Country: US (occurrence: None)
  Receive Date: 20140401
  Receipt Date: 20140401
  Transmission Date: 20141212
  Serious: Yes (Disabling, Other)
  Sender: FDA-Public Use
  Company Number: 201403079

PATIENT
  Age: 67 Year
  Sex: Male

DRUGS (1)
  1. TESTIM (TESTOSTERONE) [Suspect]
     Indication: ANDROGEN REPLACEMENT THERAPY
     Dates: start: 201205

REACTIONS (6)
  - Myocardial infarction [None]
  - Pain [None]
  - Anhedonia [None]
  - Anxiety [None]
  - Fear [None]
  - Economic problem [None]
